FAERS Safety Report 15106762 (Version 5)
Quarter: 2018Q4

REPORT INFORMATION
  Report Type: Spontaneous
  Country: US (occurrence: US)
  Receive Date: 20180704
  Receipt Date: 20181101
  Transmission Date: 20190204
  Serious: Yes (Hospitalization, Other)
  Sender: FDA-Public Use
  Company Number: US-SA-2018SA174401

PATIENT
  Age: 76 Year
  Sex: Female

DRUGS (1)
  1. AUBAGIO [Suspect]
     Active Substance: TERIFLUNOMIDE
     Indication: MULTIPLE SCLEROSIS
     Dosage: 14 MG, QD
     Route: 048
     Dates: start: 20180307

REACTIONS (6)
  - Fall [Unknown]
  - Mobility decreased [Unknown]
  - Hospitalisation [Unknown]
  - Head injury [Unknown]
  - Hypoacusis [Unknown]
  - Hip fracture [Unknown]

NARRATIVE: CASE EVENT DATE: 2018
